FAERS Safety Report 5354685-6 (Version None)
Quarter: 2007Q2

REPORT INFORMATION
  Report Type: 
  Country: None (occurrence: None)
  Receive Date: 20070612
  Receipt Date: 20070605
  Transmission Date: 20071010
  Serious: Yes (Death, Other)
  Sender: FDA-Public Use
  Company Number: US-MERCK-0706USA00741

PATIENT
  Age: 46 Year
  Sex: Male

DRUGS (2)
  1. CANCIDAS [Suspect]
     Indication: FUNGAL INFECTION
     Route: 065
  2. PRIMAXIN [Suspect]
     Route: 065

REACTIONS (10)
  - DEATH [None]
  - DRUG INEFFECTIVE [None]
  - ENTEROCOCCAL INFECTION [None]
  - IMPAIRED GASTRIC EMPTYING [None]
  - MULTI-ORGAN FAILURE [None]
  - PNEUMONITIS [None]
  - RENAL IMPAIRMENT [None]
  - SHOCK [None]
  - SPLENIC INFARCTION [None]
  - ZYGOMYCOSIS [None]
